FAERS Safety Report 5508505-7 (Version None)
Quarter: 2007Q4

REPORT INFORMATION
  Report Type: 
  Country: None (occurrence: None)
  Receive Date: 20071031
  Receipt Date: 20070912
  Transmission Date: 20080405
  Serious: No
  Sender: FDA-Public Use
  Company Number: 200711462BWH

PATIENT
  Age: 56 Year
  Sex: Male

DRUGS (5)
  1. NEXAVAR [Suspect]
     Indication: RENAL CELL CARCINOMA STAGE UNSPECIFIED
     Dosage: 40 MG BID ORAL ; 400 MG OM ORAL
     Route: 048
     Dates: start: 20070503, end: 20070501
  2. NEXAVAR [Suspect]
     Indication: RENAL CELL CARCINOMA STAGE UNSPECIFIED
     Dosage: 40 MG BID ORAL ; 400 MG OM ORAL
     Route: 048
     Dates: start: 20070520
  3. AMLODIPINE [Concomitant]
  4. LUNESTA [Concomitant]
  5. ACETAMINOPHEN [Concomitant]

REACTIONS (9)
  - BLOOD PRESSURE INCREASED [None]
  - BURNING SENSATION [None]
  - ERYTHEMA [None]
  - PAIN IN EXTREMITY [None]
  - PARAESTHESIA [None]
  - PRURITUS [None]
  - RASH [None]
  - SKIN EXFOLIATION [None]
  - SWELLING FACE [None]
